FAERS Safety Report 25736065 (Version 1)
Quarter: 2025Q3

REPORT INFORMATION
  Report Type: Spontaneous
  Country: US (occurrence: US)
  Receive Date: 20250828
  Receipt Date: 20250828
  Transmission Date: 20251021
  Serious: Yes (Other)
  Sender: B. BRAUN MEDICAL INC.
  Company Number: US-B. Braun Medical Inc.-US-BBM-202503323

PATIENT
  Age: 68 Year
  Sex: Male
  Weight: 67 kg

DRUGS (1)
  1. LIDOCAINE HYDROCHLORIDE [Suspect]
     Active Substance: LIDOCAINE HYDROCHLORIDE
     Indication: Ventricular tachycardia
     Dates: start: 20250721, end: 20250809

REACTIONS (2)
  - Drug ineffective [Recovered/Resolved]
  - Cardioactive drug level below therapeutic [Recovered/Resolved]

NARRATIVE: CASE EVENT DATE: 20250730
